FAERS Safety Report 5106552-0 (Version None)
Quarter: 2006Q3

REPORT INFORMATION
  Report Type: 
  Country: None (occurrence: None)
  Receive Date: 20060918
  Receipt Date: 20060725
  Transmission Date: 20061208
  Serious: Yes (Other)
  Sender: FDA-Public Use
  Company Number: GB-GLAXOSMITHKLINE-B0432156A

PATIENT
  Age: 66 Year
  Sex: Male
  Weight: 90 kg

DRUGS (10)
  1. ZINACEF [Suspect]
     Indication: DRUG USE FOR UNKNOWN INDICATION
     Route: 065
  2. MIDAZOLAM HCL [Concomitant]
     Route: 042
     Dates: start: 20060629, end: 20060629
  3. FENTANYL [Concomitant]
     Route: 042
     Dates: start: 20060629, end: 20060629
  4. GLYCOPYRROLATE [Concomitant]
     Route: 042
     Dates: start: 20060629, end: 20060629
  5. ONDANSETRON [Concomitant]
     Route: 042
     Dates: start: 20060629, end: 20060629
  6. KETOROLAC TROMETHAMINE [Concomitant]
     Route: 042
     Dates: start: 20060629, end: 20060629
  7. PARACETAMOL [Concomitant]
     Route: 042
     Dates: start: 20060629, end: 20060629
  8. PROPOFOL [Concomitant]
     Route: 042
     Dates: start: 20060629, end: 20060629
  9. TRAMADOL HCL [Concomitant]
     Route: 042
     Dates: start: 20060629, end: 20060629
  10. ISOFLURANE [Concomitant]

REACTIONS (4)
  - DRUG HYPERSENSITIVITY [None]
  - HYPOTENSION [None]
  - LOSS OF CONSCIOUSNESS [None]
  - PROCEDURAL COMPLICATION [None]
